FAERS Safety Report 6149559-7 (Version None)
Quarter: 2009Q2

REPORT INFORMATION
  Report Type: 
  Country: None (occurrence: None)
  Receive Date: 20090409
  Receipt Date: 20090402
  Transmission Date: 20091009
  Serious: Yes (Other)
  Sender: FDA-Public Use
  Company Number: PHEH2009US03097

PATIENT
  Age: 15 Year
  Sex: Male

DRUGS (1)
  1. FEMARA [Suspect]
     Indication: BODY HEIGHT BELOW NORMAL
     Dosage: 2.5 MG, QD
     Route: 048
     Dates: start: 20080207, end: 20090119

REACTIONS (5)
  - AUTONOMIC NERVOUS SYSTEM IMBALANCE [None]
  - HOT FLUSH [None]
  - RASH PRURITIC [None]
  - RAYNAUD'S PHENOMENON [None]
  - URTICARIA [None]
